FAERS Safety Report 5191954-7 (Version None)
Quarter: 2006Q4

REPORT INFORMATION
  Report Type: 
  Country: None (occurrence: None)
  Receive Date: 20061227
  Receipt Date: 20061117
  Transmission Date: 20070319
  Serious: Yes (Hospitalization, Other)
  Sender: FDA-Public Use
  Company Number: FR-BRISTOL-MYERS SQUIBB COMPANY-13584206

PATIENT
  Age: 63 Year
  Sex: Male
  Weight: 80 kg

DRUGS (7)
  1. ELISOR TABS 20 MG [Suspect]
     Indication: MYOCARDIAL INFARCTION
     Route: 048
     Dates: start: 20020816, end: 20061019
  2. ASPIRIN [Concomitant]
     Indication: MYOCARDIAL INFARCTION
     Route: 048
     Dates: start: 20020816
  3. AMLOR [Concomitant]
     Indication: HYPERTENSION
     Route: 048
     Dates: start: 20020816
  4. KALEORID [Concomitant]
  5. PRITOR [Concomitant]
     Indication: HYPERTENSION
     Route: 048
     Dates: start: 20020816
  6. BETATOP [Concomitant]
     Indication: MYOCARDIAL INFARCTION
     Dates: start: 20020818
  7. PRAZEPAM [Concomitant]
     Indication: ANXIETY
     Route: 048
     Dates: start: 20020816

REACTIONS (5)
  - HAEMATOMA [None]
  - MUSCLE HAEMORRHAGE [None]
  - MUSCLE RUPTURE [None]
  - MYALGIA [None]
  - MYOCARDIAL INFARCTION [None]
